FAERS Safety Report 13738520 (Version 1)
Quarter: 2017Q3

REPORT INFORMATION
  Report Type: Report from Study
  Country: US (occurrence: US)
  Receive Date: 20170710
  Receipt Date: 20170710
  Transmission Date: 20171127
  Serious: Yes (Other)
  Sender: FDA-Public Use
  Company Number: US-SAOL THERAPEUTICS-2016SAO01006

PATIENT
  Age: 49 Year
  Sex: Male

DRUGS (18)
  1. BUPIVACAINE. [Suspect]
     Active Substance: BUPIVACAINE
     Dosage: 15.014 MG, \DAY
     Route: 037
     Dates: start: 20160707
  2. COMPOUNDED BACLOFEN [Suspect]
     Active Substance: BACLOFEN
     Dosage: 476.76 ?G, \DAY
     Dates: start: 20160621
  3. COMPOUNDED BACLOFEN [Suspect]
     Active Substance: BACLOFEN
     Dosage: 400.37 ?G, \DAY
     Dates: start: 20160707
  4. FENTANYL. [Suspect]
     Active Substance: FENTANYL
     Dosage: 359.77 ?G, \DAY
     Route: 037
     Dates: start: 20160621
  5. BUPIVACAINE. [Suspect]
     Active Substance: BUPIVACAINE
     Dosage: 20.877 MG, \DAY
     Route: 037
     Dates: start: 20160707
  6. COMPOUNDED BACLOFEN [Suspect]
     Active Substance: BACLOFEN
     Dosage: 506.87 ?G, \DAY
     Dates: start: 20160621
  7. COMPOUNDED BACLOFEN [Suspect]
     Active Substance: BACLOFEN
     Dosage: 556.73 ?G, \DAY
     Dates: start: 20160707
  8. COMPOUNDED BACLOFEN [Suspect]
     Active Substance: BACLOFEN
     Dosage: 561.79 ?G, \DAY
     Dates: start: 20160812
  9. FENTANYL. [Suspect]
     Active Substance: FENTANYL
     Dosage: 561.79 ?G, \DAY
     Route: 037
     Dates: start: 20160812
  10. BUPIVACAINE. [Suspect]
     Active Substance: BUPIVACAINE
     Dosage: 17.879 MG, \DAY
     Route: 037
     Dates: start: 20160621
  11. FENTANYL. [Suspect]
     Active Substance: FENTANYL
     Dosage: 556.73 ?G, \DAY
     Route: 037
     Dates: start: 20160707
  12. BUPIVACAINE. [Suspect]
     Active Substance: BUPIVACAINE
     Dosage: 21.067 MG, \DAY
     Route: 037
     Dates: start: 20160812
  13. FENTANYL. [Suspect]
     Active Substance: FENTANYL
     Dosage: 476.76 ?G, \DAY
     Route: 037
     Dates: start: 20160621
  14. FENTANYL. [Suspect]
     Active Substance: FENTANYL
     Dosage: 506.87 ?G, \DAY
     Route: 037
     Dates: start: 20160621
  15. BUPIVACAINE. [Suspect]
     Active Substance: BUPIVACAINE
     Dosage: 13.491 MG, \DAY
     Route: 037
     Dates: start: 20160621
  16. BUPIVACAINE. [Suspect]
     Active Substance: BUPIVACAINE
     Dosage: 19.008 MG, \DAY
     Route: 037
     Dates: start: 20160621
  17. COMPOUNDED BACLOFEN [Suspect]
     Active Substance: BACLOFEN
     Dosage: 359.77 ?G, \DAY
     Route: 037
     Dates: start: 20160621
  18. FENTANYL. [Suspect]
     Active Substance: FENTANYL
     Dosage: 400.37 ?G, \DAY
     Route: 037
     Dates: start: 20160707

REACTIONS (3)
  - Device kink [Recovered/Resolved]
  - Drug withdrawal syndrome [Unknown]
  - Pain [Unknown]

NARRATIVE: CASE EVENT DATE: 20160621
